FAERS Safety Report 21474544 (Version 8)
Quarter: 2023Q2

REPORT INFORMATION
  Report Type: Report from Study
  Country: CO (occurrence: CO)
  Receive Date: 20221018
  Receipt Date: 20230616
  Transmission Date: 20230721
  Serious: Yes (Hospitalization)
  Sender: FDA-Public Use
  Company Number: CO-NOVARTISPH-NVSC2022CO230796

PATIENT
  Age: 9 Year
  Sex: Male
  Weight: 25 kg

DRUGS (7)
  1. ADAKVEO [Suspect]
     Active Substance: CRIZANLIZUMAB-TMCA
     Indication: Sickle cell anaemia with crisis
     Dosage: 8.5 MG, Q4W
     Route: 042
     Dates: start: 20220518
  2. HYDROXYUREA [Concomitant]
     Active Substance: HYDROXYUREA
     Indication: General physical condition
     Dosage: UNK
     Route: 065
     Dates: start: 202001
  3. FOLIC ACID [Concomitant]
     Active Substance: FOLIC ACID
     Indication: General physical condition
     Dosage: UNK
     Route: 065
     Dates: start: 2016
  4. ACETAMINOPHEN [Concomitant]
     Active Substance: ACETAMINOPHEN
     Indication: General physical condition
     Dosage: UNK
     Route: 065
     Dates: start: 20220707, end: 20220707
  5. ACETAMINOPHEN [Concomitant]
     Active Substance: ACETAMINOPHEN
     Indication: Anaemia
     Dosage: UNK
     Route: 065
     Dates: start: 20220927, end: 20220927
  6. HYDROCORTISONE [Concomitant]
     Active Substance: HYDROCORTISONE
     Indication: Anaemia
     Dosage: UNK
     Route: 065
     Dates: start: 20220707, end: 20220707
  7. DIPHENHYDRAMINE [Concomitant]
     Active Substance: DIPHENHYDRAMINE
     Indication: Anaemia
     Dosage: UNK
     Route: 065
     Dates: start: 20220707, end: 20220707

REACTIONS (1)
  - Anaemia [Recovered/Resolved]

NARRATIVE: CASE EVENT DATE: 20221012
